FAERS Safety Report 8247348-0 (Version None)
Quarter: 2012Q1

REPORT INFORMATION
  Report Type: 
  Country: None (occurrence: None)
  Receive Date: 20120316
  Receipt Date: 20100105
  Transmission Date: 20120608
  Serious: Yes (Other)
  Sender: FDA-Public Use
  Company Number: PHHY2010US00665

PATIENT
  Age: 72 Year
  Sex: Male

DRUGS (1)
  1. TEKTURNA [Suspect]
     Dosage: 150MG HALF DF, EVERY OTHER DAY

REACTIONS (5)
  - RASH [None]
  - BLOOD CREATININE INCREASED [None]
  - MUSCULOSKELETAL STIFFNESS [None]
  - MUSCLE SPASMS [None]
  - BLOOD PRESSURE FLUCTUATION [None]
